FAERS Safety Report 23687686 (Version 2)
Quarter: 2024Q2

REPORT INFORMATION
  Report Type: Spontaneous
  Country: RU (occurrence: RU)
  Receive Date: 20240329
  Receipt Date: 20240402
  Transmission Date: 20240716
  Serious: Yes (Life-Threatening)
  Sender: FDA-Public Use
  Company Number: RU-AstraZeneca-2024A074990

PATIENT
  Age: 2 Month
  Sex: Male
  Weight: 2 kg

DRUGS (1)
  1. SYNAGIS [Suspect]
     Active Substance: PALIVIZUMAB
     Indication: Antiviral prophylaxis
     Dosage: 100 MG/ML, AT UNKNOWN DOSAGE, ONCE15.0MG/KG UNKNOWN
     Route: 030
     Dates: start: 20240318

REACTIONS (2)
  - Drug ineffective [Unknown]
  - Pneumonia respiratory syncytial viral [Not Recovered/Not Resolved]

NARRATIVE: CASE EVENT DATE: 20240322
